FAERS Safety Report 11475212 (Version 3)
Quarter: 2016Q1

REPORT INFORMATION
  Report Type: Report from Study
  Country: US (occurrence: US)
  Receive Date: 20150909
  Receipt Date: 20160129
  Transmission Date: 20160525
  Serious: No
  Sender: FDA-Public Use
  Company Number: PHEH2015US016529

PATIENT
  Sex: Female
  Weight: 90.7 kg

DRUGS (1)
  1. GILENYA [Suspect]
     Active Substance: FINGOLIMOD HYDROCHLORIDE
     Indication: MULTIPLE SCLEROSIS
     Dosage: 0.5 MG, QD
     Route: 048
     Dates: start: 20150304

REACTIONS (8)
  - Pain [Unknown]
  - Stress [Unknown]
  - Cognitive disorder [Unknown]
  - Chills [Unknown]
  - Influenza like illness [Unknown]
  - Herpes zoster [Recovering/Resolving]
  - Muscle spasms [Unknown]
  - Herpes simplex [Unknown]
